FAERS Safety Report 6145642-0 (Version None)
Quarter: 2009Q2

REPORT INFORMATION
  Report Type: 
  Country: None (occurrence: None)
  Receive Date: 20090407
  Receipt Date: 20090331
  Transmission Date: 20091009
  Serious: Yes (Other)
  Sender: FDA-Public Use
  Company Number: US-JNJFOC-20090400968

PATIENT
  Age: 45 Year
  Sex: Female

DRUGS (3)
  1. SIMPLY SLEEP NIGHTTIME [Suspect]
     Route: 048
  2. SIMPLY SLEEP NIGHTTIME [Suspect]
     Indication: INSOMNIA
     Route: 048
  3. VITAMIN B-12 [Concomitant]
     Indication: ANAEMIA

REACTIONS (2)
  - ANAEMIA [None]
  - MUSCLE TWITCHING [None]
